FAERS Safety Report 8800706 (Version 3)
Quarter: 2013Q1

REPORT INFORMATION
  Report Type: Spontaneous
  Country: US (occurrence: US)
  Receive Date: 20120921
  Receipt Date: 20130124
  Transmission Date: 20140127
  Serious: Yes (Hospitalization)
  Sender: FDA-Public Use
  Company Number: US-BAYER-2012-098120

PATIENT
  Age: 27 Year
  Sex: Female

DRUGS (7)
  1. YAZ [Suspect]
  2. YASMIN [Suspect]
  3. OCELLA [Suspect]
  4. MULTIVITAMINS WITH IRON [VIT C,B12,D2,B3,P+,B6,RETINOL,B2,B1 HCL,V [Concomitant]
  5. FLEXERIL [Concomitant]
  6. PERCOCET [Concomitant]
  7. MULTIVITAMIN [Concomitant]

REACTIONS (2)
  - Pulmonary embolism [None]
  - Injury [None]
